FAERS Safety Report 21680863 (Version 1)
Quarter: 2022Q4

REPORT INFORMATION
  Report Type: Report from Study
  Country: GB (occurrence: GB)
  Receive Date: 20221205
  Receipt Date: 20221205
  Transmission Date: 20230113
  Serious: Yes (Death, Other)
  Sender: FDA-Public Use
  Company Number: GB-PFIZER INC-PV202200111494

PATIENT
  Age: 62 Year

DRUGS (3)
  1. GEMCITABINE HYDROCHLORIDE [Suspect]
     Active Substance: GEMCITABINE HYDROCHLORIDE
     Indication: Neoplasm malignant
     Dosage: 250 MG/M2, 28-DAY CYCLES, 1, 8 AND 15
     Route: 042
  2. GEMCITABINE HYDROCHLORIDE [Suspect]
     Active Substance: GEMCITABINE HYDROCHLORIDE
     Dosage: 300 MG/M2, 28-DAY CYCLES
     Route: 042
  3. INVESTIGATIONAL PRODUCT [Suspect]
     Active Substance: INVESTIGATIONAL PRODUCT
     Indication: Neoplasm malignant
     Dosage: UNK, CYCLIC, ON DAYS 2, 3 9, 10, 16 AND 17, 28-DAY CYCLES
     Route: 048

REACTIONS (1)
  - Cardiac arrest [Fatal]
